FAERS Safety Report 5748546-8 (Version None)
Quarter: 2008Q2

REPORT INFORMATION
  Report Type: 
  Country: None (occurrence: None)
  Receive Date: 20080523
  Receipt Date: 20080512
  Transmission Date: 20081010
  Serious: Yes (Other)
  Sender: FDA-Public Use
  Company Number: US-PFIZER INC-2008042064

PATIENT
  Sex: Female
  Weight: 92.5 kg

DRUGS (5)
  1. LYRICA [Suspect]
     Indication: PAIN IN EXTREMITY
     Dates: start: 20080401, end: 20080401
  2. NORVASC [Concomitant]
  3. IBUPROFEN [Concomitant]
  4. TYLENOL [Concomitant]
  5. HYDROCHLOROTHIAZIDE [Concomitant]

REACTIONS (5)
  - DRUG WITHDRAWAL SYNDROME [None]
  - HEADACHE [None]
  - MUSCLE ATROPHY [None]
  - PAIN [None]
  - TREMOR [None]
